FAERS Safety Report 9060809 (Version 6)
Quarter: 2014Q1

REPORT INFORMATION
  Report Type: Spontaneous
  Country: US (occurrence: US)
  Receive Date: 20130204
  Receipt Date: 20140106
  Transmission Date: 20141002
  Serious: Yes (Hospitalization, Other)
  Sender: FDA-Public Use
  Company Number: US-009507513-1302USA000343

PATIENT
  Sex: Female

DRUGS (11)
  1. FOSAMAX [Suspect]
     Indication: OSTEOPOROSIS
     Dosage: 10 MG, UNK
     Route: 048
     Dates: start: 20000803, end: 200110
  2. FOSAMAX [Suspect]
     Dosage: 70 MG, UNK
     Route: 048
     Dates: start: 200110, end: 200708
  3. FOSAMAX PLUS D [Suspect]
     Indication: OSTEOPOROSIS
     Dosage: 70 MG, UNK
     Route: 048
     Dates: start: 20070425, end: 200902
  4. ALENDRONATE SODIUM [Suspect]
     Indication: OSTEOPOROSIS
     Dosage: 70 MG, UNK
     Route: 048
     Dates: start: 20090317, end: 201005
  5. CALCIUM (UNSPECIFIED) [Concomitant]
     Dosage: 200 MG, QD
     Dates: start: 2000
  6. VITAMIN E [Concomitant]
     Dosage: 1000 IU, UNK
     Dates: start: 1990, end: 2005
  7. VITAMINS (UNSPECIFIED) [Concomitant]
     Dosage: UNK, QD
     Dates: start: 1990, end: 2005
  8. HORMONES (UNSPECIFIED) [Concomitant]
     Dosage: UNK
     Dates: start: 1984
  9. ATENOLOL [Concomitant]
     Indication: HYPERTENSION
     Dosage: UNK
     Dates: start: 2000
  10. TEMAZEPAM [Concomitant]
     Indication: SLEEP DISORDER
     Dosage: UNK
     Dates: start: 1986
  11. BUPROPION HYDROCHLORIDE [Concomitant]
     Indication: TOBACCO USER
     Dosage: UNK
     Dates: start: 1999

REACTIONS (16)
  - Femur fracture [Unknown]
  - Intramedullary rod insertion [Unknown]
  - Fall [Unknown]
  - Surgery [Unknown]
  - Tibia fracture [Unknown]
  - Medical device complication [Unknown]
  - Impaired healing [Unknown]
  - Wrist fracture [Unknown]
  - Blood cholesterol increased [Unknown]
  - Herpes zoster [Unknown]
  - Migraine [Unknown]
  - Restless legs syndrome [Unknown]
  - Fracture nonunion [Unknown]
  - Hypothyroidism [Unknown]
  - Psoriasis [Unknown]
  - Headache [Unknown]
